FAERS Safety Report 16038038 (Version 7)
Quarter: 2020Q3

REPORT INFORMATION
  Report Type: Report from Study
  Country: US (occurrence: US)
  Receive Date: 20190305
  Receipt Date: 20200709
  Transmission Date: 20201102
  Serious: Yes (Death, Hospitalization)
  Sender: FDA-Public Use
  Company Number: US-ACTELION-A-NJ2019-186731

PATIENT
  Age: 75 Year
  Sex: Female
  Weight: 84.81 kg

DRUGS (5)
  1. UPTRAVI [Suspect]
     Active Substance: SELEXIPAG
     Indication: PULMONARY ARTERIAL HYPERTENSION
     Dosage: 800 MCG, BID
     Route: 048
  2. UPTRAVI [Suspect]
     Active Substance: SELEXIPAG
     Dosage: 200 MCG, BID
     Route: 048
  3. TADALAFIL. [Concomitant]
     Active Substance: TADALAFIL
  4. UPTRAVI [Suspect]
     Active Substance: SELEXIPAG
     Dosage: 400 MCG, BID
     Route: 048
  5. AMLODIPINE [Concomitant]
     Active Substance: AMLODIPINE BESYLATE

REACTIONS (10)
  - Weight increased [Unknown]
  - Pneumonia [Unknown]
  - Fluid overload [Unknown]
  - Rash [Unknown]
  - Pulmonary hypertension [Unknown]
  - Pain [Unknown]
  - Death [Fatal]
  - Peripheral swelling [Unknown]
  - Headache [Unknown]
  - Diuretic therapy [Unknown]

NARRATIVE: CASE EVENT DATE: 20200414
